FAERS Safety Report 4640676-7 (Version None)
Quarter: 2005Q2

REPORT INFORMATION
  Report Type: 
  Country: None (occurrence: None)
  Receive Date: 20050420
  Receipt Date: 20050414
  Transmission Date: 20051028
  Serious: Yes (Other)
  Sender: FDA-Public Use
  Company Number: GB-ABBOTT-05P-167-0297528-00

PATIENT
  Age: 15 Year
  Sex: Female

DRUGS (2)
  1. EPILIM [Suspect]
     Indication: EPILEPSY
     Route: 065
     Dates: start: 19900101
  2. FISH OIL [Interacting]
     Indication: DRUG USE FOR UNKNOWN INDICATION
     Route: 065

REACTIONS (3)
  - CONVULSION [None]
  - DRUG INEFFECTIVE [None]
  - DRUG INTERACTION [None]
